FAERS Safety Report 25684589 (Version 1)
Quarter: 2025Q3

REPORT INFORMATION
  Report Type: Report from Study
  Country: GB (occurrence: GB)
  Receive Date: 20250815
  Receipt Date: 20250815
  Transmission Date: 20251020
  Serious: Yes (Hospitalization)
  Sender: ABBVIE
  Company Number: GB-ABBVIE-6415551

PATIENT
  Sex: Male

DRUGS (1)
  1. SKYRIZI [Suspect]
     Active Substance: RISANKIZUMAB-RZAA
     Indication: Psoriasis
     Dosage: 1 PRE-FILLED DISPOSABLE INJECTION?150MG/1ML SOLUTION FOR INJECTION PRE-FILLED PENS
     Route: 058

REACTIONS (1)
  - Self-destructive behaviour [Unknown]
